FAERS Safety Report 21684805 (Version 4)
Quarter: 2023Q1

REPORT INFORMATION
  Report Type: Report from Study
  Country: FR (occurrence: FR)
  Receive Date: 20221205
  Receipt Date: 20230104
  Transmission Date: 20230418
  Serious: Yes (Other)
  Sender: FDA-Public Use
  Company Number: FR-ABBVIE-4224130

PATIENT
  Age: 69 Year
  Sex: Female

DRUGS (2)
  1. CARBIDOPA\LEVODOPA [Suspect]
     Active Substance: CARBIDOPA\LEVODOPA
     Indication: Parkinson^s disease
     Dosage: MORNING DOSE 5ML?LAST ADMIN DATE: DEC 2022
     Route: 050
     Dates: start: 20210323
  2. CARBIDOPA\LEVODOPA [Suspect]
     Active Substance: CARBIDOPA\LEVODOPA
     Dosage: MORNING DOSE 3ML, AFTERNOON DOSE 6 ML?FIRST ADMIN DATE: DEC 2022
     Route: 050

REACTIONS (8)
  - Dyskinesia [Not Recovered/Not Resolved]
  - Urinary incontinence [Unknown]
  - Intentional device misuse [Unknown]
  - Freezing phenomenon [Unknown]
  - Haematoma [Unknown]
  - Fall [Unknown]
  - Eye irritation [Unknown]
  - Hallucination, visual [Unknown]

NARRATIVE: CASE EVENT DATE: 20220101
